FAERS Safety Report 16798015 (Version 2)
Quarter: 2019Q3

REPORT INFORMATION
  Report Type: Spontaneous
  Country: FR (occurrence: FR)
  Receive Date: 20190912
  Receipt Date: 20190917
  Transmission Date: 20191005
  Serious: Yes (Hospitalization)
  Sender: FDA-Public Use
  Company Number: FR-TEVA-2019-FR-1104777

PATIENT
  Age: 53 Year
  Sex: Male
  Weight: 61 kg

DRUGS (9)
  1. EFFIZINC [Concomitant]
     Active Substance: ZINC GLUCONATE
     Indication: MINERAL SUPPLEMENTATION
     Dosage: 30 MG
     Route: 048
     Dates: start: 20190725
  2. TARDYFERON [Concomitant]
     Active Substance: FERROUS SULFATE
     Indication: MINERAL SUPPLEMENTATION
     Dosage: 80 MG
     Route: 048
     Dates: start: 20190724
  3. THERALENE [Suspect]
     Active Substance: TRIMEPRAZINE
     Indication: INSOMNIA
     Dosage: 10MG/ DAY/ 6 DAYS
     Route: 048
     Dates: start: 20190722, end: 20190728
  4. XEPLION [Suspect]
     Active Substance: PALIPERIDONE PALMITATE
     Indication: DELIRIUM
     Dosage: VARIABLE
     Route: 030
     Dates: start: 20190702, end: 20190709
  5. ACIDE FOLIQUE [Concomitant]
     Active Substance: FOLIC ACID
     Indication: VITAMIN SUPPLEMENTATION
     Dosage: 0.4 MG
     Route: 048
     Dates: start: 20190724
  6. RISPERIDONE. [Suspect]
     Active Substance: RISPERIDONE
     Indication: DELIRIUM
     Dosage: 4 MG/ DAY/ 14 DAYS
     Route: 048
     Dates: start: 20190618, end: 20190702
  7. HYDROSOL POLYVITAMINE B.O.N [Concomitant]
     Indication: VITAMIN SUPPLEMENTATION
     Dosage: 25 GTT
     Route: 048
     Dates: start: 20190725
  8. PAROXETINE. [Concomitant]
     Active Substance: PAROXETINE
     Indication: DEPRESSION
     Dosage: 20 MG
     Route: 048
     Dates: start: 20190618
  9. MOVICOL [Concomitant]
     Active Substance: POLYETHYLENE GLYCOL 3350\POTASSIUM CHLORIDE\SODIUM BICARBONATE\SODIUM CHLORIDE
     Indication: CONSTIPATION
     Dosage: 1 DF
     Route: 048
     Dates: start: 20190726

REACTIONS (1)
  - Catatonia [Recovered/Resolved]

NARRATIVE: CASE EVENT DATE: 20190802
